FAERS Safety Report 7642013-2 (Version None)
Quarter: 2011Q3

REPORT INFORMATION
  Report Type: 
  Country: None (occurrence: None)
  Receive Date: 20110728
  Receipt Date: 20110727
  Transmission Date: 20111222
  Serious: Yes (Other)
  Sender: FDA-Public Use
  Company Number: BR-PFIZER INC-2011164317

PATIENT
  Age: 40 Year
  Sex: Female
  Weight: 62 kg

DRUGS (4)
  1. VARENICLINE TARTRATE [Suspect]
     Dosage: 1 MG, 2X/DAY
     Route: 048
     Dates: start: 20110101
  2. CITALOPRAM [Suspect]
     Indication: ANTIDEPRESSANT THERAPY
     Dosage: 20 MG, 1X/DAY
     Dates: start: 20110501
  3. CLONAZEPAM [Suspect]
     Indication: NERVOUSNESS
     Dosage: 0.25 MG, UNK
     Dates: start: 20110501
  4. VARENICLINE TARTRATE [Suspect]
     Indication: TOBACCO ABUSE
     Dosage: UNK
     Route: 048
     Dates: start: 20110415, end: 20110101

REACTIONS (3)
  - MEMORY IMPAIRMENT [None]
  - NERVOUSNESS [None]
  - BLOOD PRESSURE INCREASED [None]
